FAERS Safety Report 13661801 (Version 2)
Quarter: 2017Q3

REPORT INFORMATION
  Report Type: Report from Study
  Country: MX (occurrence: MX)
  Receive Date: 20170616
  Receipt Date: 20170828
  Transmission Date: 20171127
  Serious: Yes (Other)
  Sender: FDA-Public Use
  Company Number: MX-BAYER-2016-128384

PATIENT
  Age: 75 Year
  Sex: Female
  Weight: 40 kg

DRUGS (10)
  1. NEXAVAR [Suspect]
     Active Substance: SORAFENIB
     Indication: RENAL CANCER
     Dosage: 800 MG PER DAY
     Dates: end: 2016
  2. NEXAVAR [Suspect]
     Active Substance: SORAFENIB
     Indication: RENAL CANCER
     Dosage: 600 MG PER DAY
     Dates: start: 2016, end: 2017
  3. NEXAVAR [Suspect]
     Active Substance: SORAFENIB
     Indication: RENAL CANCER
     Dosage: 600 MG, QD
     Dates: start: 20150810
  4. NEXAVAR [Suspect]
     Active Substance: SORAFENIB
     Indication: RENAL CANCER
     Dosage: 400 MG, QD
     Dates: start: 201705, end: 201705
  5. OMEPRAZOLE. [Concomitant]
     Active Substance: OMEPRAZOLE
     Dosage: 20 MG, QD
  6. NEXAVAR [Suspect]
     Active Substance: SORAFENIB
     Indication: RENAL CANCER
     Dosage: UNK
     Dates: start: 20170810
  7. GLIBENCLAMIDE [Concomitant]
     Active Substance: GLYBURIDE
  8. METOPROLOL. [Concomitant]
     Active Substance: METOPROLOL
     Dosage: 50 MG, QD
  9. PREDNISONE. [Concomitant]
     Active Substance: PREDNISONE
  10. FUROSEMIDE. [Concomitant]
     Active Substance: FUROSEMIDE
     Dosage: 20 MG, OM

REACTIONS (22)
  - Enterocolitis infectious [Not Recovered/Not Resolved]
  - Arrhythmia [None]
  - Skin burning sensation [Not Recovered/Not Resolved]
  - Weight decreased [Unknown]
  - Skin haemorrhage [Unknown]
  - Gastric ulcer [Recovered/Resolved]
  - Pain of skin [Not Recovered/Not Resolved]
  - Skin swelling [Unknown]
  - Blister [Unknown]
  - Abdominal discomfort [Recovered/Resolved]
  - Skin discolouration [Not Recovered/Not Resolved]
  - Tachycardia [Unknown]
  - Diarrhoea [Recovered/Resolved]
  - Pruritus [Unknown]
  - Renal pain [Unknown]
  - Diarrhoea [Not Recovered/Not Resolved]
  - Venous occlusion [Unknown]
  - Diarrhoea [Recovered/Resolved]
  - Skin burning sensation [Recovering/Resolving]
  - Arrhythmia [Not Recovered/Not Resolved]
  - Vomiting [Not Recovered/Not Resolved]
  - Heart rate increased [Unknown]

NARRATIVE: CASE EVENT DATE: 20150810
